FAERS Safety Report 17819908 (Version 1)
Quarter: 2020Q2

REPORT INFORMATION
  Report Type: Spontaneous
  Country: GB (occurrence: GB)
  Receive Date: 20200524
  Receipt Date: 20200524
  Transmission Date: 20200714
  Serious: Yes (Life-Threatening)
  Sender: FDA-Public Use
  Company Number: GB-BAXTER-2020BAX010348

PATIENT
  Age: 87 Year

DRUGS (13)
  1. FUROSEMIDE 10MG/ML SOLUTION FOR INJECTION [Suspect]
     Active Substance: FUROSEMIDE
     Indication: CARDIAC FAILURE
     Route: 065
     Dates: start: 20120918
  2. GENTAMICIN. [Suspect]
     Active Substance: GENTAMICIN
     Route: 065
     Dates: start: 20190912
  3. LATANOPROST. [Concomitant]
     Active Substance: LATANOPROST
     Indication: PRODUCT USED FOR UNKNOWN INDICATION
     Dosage: ONE DROP TO BE USED AT NIGHT (BOTH EYES). 50UG/ML
     Route: 065
  4. PARACETAMOL [Concomitant]
     Active Substance: ACETAMINOPHEN
     Indication: PRODUCT USED FOR UNKNOWN INDICATION
     Dosage: TWO TO BE TAKEN EVERY 4-6 HOURS UP TO FOUR TIMES A DAY
     Route: 065
  5. DULOXETINE. [Concomitant]
     Active Substance: DULOXETINE
     Indication: PRODUCT USED FOR UNKNOWN INDICATION
     Dosage: MORNING
     Route: 065
  6. GENTAMICIN. [Suspect]
     Active Substance: GENTAMICIN
     Indication: BILIARY SEPSIS
     Route: 065
     Dates: start: 20190914, end: 20190916
  7. BETAHISTINE [Concomitant]
     Active Substance: BETAHISTINE
     Indication: PRODUCT USED FOR UNKNOWN INDICATION
     Dosage: WITH MEALS
     Route: 065
  8. OMEPRAZOLE. [Concomitant]
     Active Substance: OMEPRAZOLE
     Indication: PRODUCT USED FOR UNKNOWN INDICATION
     Route: 065
  9. FOSTAIR [Concomitant]
     Active Substance: BECLOMETHASONE\FORMOTEROL
     Indication: PRODUCT USED FOR UNKNOWN INDICATION
     Dosage: 100MICROGRAMS/DOSE / 6MICROGRAMS/DOSE
     Route: 055
  10. SPIRONOLACTONE. [Suspect]
     Active Substance: SPIRONOLACTONE
     Indication: CARDIAC FAILURE
     Dosage: MORNING
     Route: 065
     Dates: start: 20190916
  11. SALAMOL [Concomitant]
     Active Substance: ALBUTEROL
     Indication: PRODUCT USED FOR UNKNOWN INDICATION
     Dosage: EASI-BREATHE INHALER ONE OR TWO PUFFS WHEN REQUIRED - PT HAS METERED DOSE IHALER?AS REQUIRED
     Route: 065
  12. CALCICHEW D3 [Concomitant]
     Active Substance: CALCIUM\CHOLECALCIFEROL
     Indication: PRODUCT USED FOR UNKNOWN INDICATION
     Route: 065
  13. LINAGLIPTIN [Concomitant]
     Active Substance: LINAGLIPTIN
     Indication: PRODUCT USED FOR UNKNOWN INDICATION
     Route: 065

REACTIONS (3)
  - Inappropriate schedule of product administration [Unknown]
  - Antibiotic level above therapeutic [Unknown]
  - Acute kidney injury [Recovered/Resolved]

NARRATIVE: CASE EVENT DATE: 201909
